FAERS Safety Report 13531158 (Version 1)
Quarter: 2017Q2

REPORT INFORMATION
  Report Type: Report from Study
  Country: IN (occurrence: IN)
  Receive Date: 20170510
  Receipt Date: 20170510
  Transmission Date: 20170830
  Serious: Yes (Hospitalization, Other)
  Sender: FDA-Public Use
  Company Number: IN-SUN PHARMACEUTICAL INDUSTRIES LTD-2017R1-140112

PATIENT
  Age: 77 Year
  Sex: Male

DRUGS (5)
  1. ISONIAZID. [Suspect]
     Active Substance: ISONIAZID
     Indication: PLEURAL EFFUSION
     Dosage: 300 MG, DAILY
     Route: 065
  2. ETHAMBUTOL [Concomitant]
     Active Substance: ETHAMBUTOL HYDROCHLORIDE
     Indication: PLEURAL EFFUSION
     Dosage: 800 MG, DAILY
     Route: 065
  3. PYRIDOXINE [Concomitant]
     Active Substance: PYRIDOXINE
     Indication: PLEURAL EFFUSION
     Dosage: 40 MG, DAILY
     Route: 065
  4. RIFAMPICIN [Concomitant]
     Active Substance: RIFAMPIN
     Indication: PLEURAL EFFUSION
     Dosage: 450 MG, DAILY
     Route: 065
  5. PRYRAZINAMIDE [Concomitant]
     Indication: PLEURAL EFFUSION
     Dosage: 1 G, DAILY
     Route: 065

REACTIONS (2)
  - Toxicity to various agents [Recovering/Resolving]
  - Neurotoxicity [Recovering/Resolving]
